FAERS Safety Report 16233295 (Version 1)
Quarter: 2019Q2

REPORT INFORMATION
  Report Type: Spontaneous
  Country: US (occurrence: US)
  Receive Date: 20190319
  Receipt Date: 20190319
  Transmission Date: 20190711
  Serious: Yes (Hospitalization, Disabling)
  Sender: FDA-Public Use
  Company Number: None

PATIENT
  Age: 20 Year
  Sex: Male
  Weight: 72.58 kg

DRUGS (4)
  1. CIPROFLOXACIN. [Suspect]
     Active Substance: CIPROFLOXACIN
     Indication: PRODUCT USED FOR UNKNOWN INDICATION
     Dosage: ?          QUANTITY:500 MG MILLIGRAM(S);?
     Route: 048
     Dates: start: 20160326
  2. ASMANEX [Concomitant]
     Active Substance: MOMETASONE FUROATE
  3. LEVOFLOXACIN. [Suspect]
     Active Substance: LEVOFLOXACIN
     Indication: PNEUMONIA
     Dosage: ?          QUANTITY:500 MG MILLIGRAM(S);?
     Route: 048
     Dates: start: 20160326
  4. PROAIR HFA [Concomitant]
     Active Substance: ALBUTEROL SULFATE

REACTIONS (40)
  - Arthralgia [None]
  - Quality of life decreased [None]
  - Toxicity to various agents [None]
  - Nerve injury [None]
  - Diarrhoea [None]
  - Prescribed overdose [None]
  - Ocular hyperaemia [None]
  - Pharyngeal swelling [None]
  - Neck pain [None]
  - Ankylosing spondylitis [None]
  - Tremor [None]
  - Ligament sprain [None]
  - Neuralgia [None]
  - Vitamin D decreased [None]
  - Gastrooesophageal reflux disease [None]
  - Pain [None]
  - Gastrointestinal haemorrhage [None]
  - Musculoskeletal chest pain [None]
  - Cardiac disorder [None]
  - Gait disturbance [None]
  - Back pain [None]
  - Gastric disorder [None]
  - Myocardial necrosis marker increased [None]
  - Drug eruption [None]
  - Arthropathy [None]
  - Musculoskeletal pain [None]
  - Behcet^s syndrome [None]
  - Rash [None]
  - Skin exfoliation [None]
  - Product prescribing error [None]
  - Meniscus injury [None]
  - Renal disorder [None]
  - Drug ineffective [None]
  - Colitis ulcerative [None]
  - Chest pain [None]
  - Patellofemoral pain syndrome [None]
  - Drug hypersensitivity [None]
  - Tongue disorder [None]
  - Carpal tunnel syndrome [None]
  - Grip strength decreased [None]

NARRATIVE: CASE EVENT DATE: 20160326
